FAERS Safety Report 24171338 (Version 2)
Quarter: 2025Q3

REPORT INFORMATION
  Report Type: Spontaneous
  Country: US (occurrence: US)
  Receive Date: 20240805
  Receipt Date: 20250808
  Transmission Date: 20251020
  Serious: No
  Sender: RANBAXY
  Company Number: US-SUN PHARMACEUTICAL INDUSTRIES LTD-2024R1-453805

PATIENT
  Sex: Female

DRUGS (3)
  1. ODOMZO [Suspect]
     Active Substance: SONIDEGIB
     Indication: Basal cell carcinoma
     Dosage: 1 CAPSULE, DAILY
     Route: 048
     Dates: start: 20240219, end: 20240516
  2. ODOMZO [Suspect]
     Active Substance: SONIDEGIB
     Dosage: 200 MILLIGRAM, 1 DOSAGE OD
     Route: 048
     Dates: start: 20240219, end: 20240912
  3. PEPTO-BISMOL [Suspect]
     Active Substance: BISMUTH SUBSALICYLATE
     Indication: Diarrhoea
     Route: 065

REACTIONS (5)
  - Product use issue [Unknown]
  - Diarrhoea [Unknown]
  - Dizziness [Unknown]
  - Asthenia [Unknown]
  - Myalgia [Unknown]
